FAERS Safety Report 5307791-6 (Version None)
Quarter: 2007Q2

REPORT INFORMATION
  Report Type: 
  Country: None (occurrence: None)
  Receive Date: 20070418
  Receipt Date: 20070409
  Transmission Date: 20071010
  Serious: Yes (Hospitalization)
  Sender: FDA-Public Use
  Company Number: 163-21880-06111162

PATIENT
  Age: 62 Year
  Sex: Male

DRUGS (14)
  1. REVLIMID [Suspect]
     Indication: CHRONIC LYMPHOCYTIC LEUKAEMIA
     Dosage: 15 MG, DAILY, ORAL
     Route: 048
     Dates: end: 20061106
  2. RITUXIMAB (RITUXIMAB) [Suspect]
     Indication: CHRONIC LYMPHOCYTIC LEUKAEMIA
  3. G- CSF( GRANULOCYTE COLONY STIMULATING FACTOR) [Concomitant]
  4. LEVAQUIN [Concomitant]
  5. TUMS (CALCIUM CARBONATE) [Concomitant]
  6. CALCIUM GLUCONATE [Concomitant]
  7. PACKED RED CELLS (BLOOD CELLS, PACKED HUMAN) [Concomitant]
  8. LASIX [Concomitant]
  9. K-DUR 10 [Concomitant]
  10. METFORMIN HCL [Concomitant]
  11. ROBITUSSIN AC (GUAIFENESIN) [Concomitant]
  12. COLACE (DOCUSATE SODIUM) [Concomitant]
  13. SENOKOT S (SENOKOT-S) [Concomitant]
  14. NEUPOGEN [Concomitant]

REACTIONS (16)
  - ACTIVATED PARTIAL THROMBOPLASTIN TIME PROLONGED [None]
  - ANAEMIA [None]
  - ATELECTASIS [None]
  - FLUID OVERLOAD [None]
  - HYPERBILIRUBINAEMIA [None]
  - HYPERGLYCAEMIA [None]
  - HYPOALBUMINAEMIA [None]
  - HYPOCALCAEMIA [None]
  - HYPONATRAEMIA [None]
  - NEUTROPENIA [None]
  - OEDEMA PERIPHERAL [None]
  - PLEURAL EFFUSION [None]
  - PSEUDOMONAL BACTERAEMIA [None]
  - PULMONARY EMBOLISM [None]
  - PULMONARY OEDEMA [None]
  - THROMBOCYTOPENIA [None]
